FAERS Safety Report 10187245 (Version 3)
Quarter: 2014Q2

REPORT INFORMATION
  Report Type: Report from Study
  Country: DE (occurrence: DE)
  Receive Date: 20140522
  Receipt Date: 20140618
  Transmission Date: 20141212
  Serious: Yes (Hospitalization)
  Sender: FDA-Public Use
  Company Number: PHHO2012DE002004

PATIENT
  Sex: 0

DRUGS (4)
  1. SOM230 [Suspect]
     Dosage: 60 MG, UNK
     Route: 030
     Dates: start: 20111219
  2. AFINITOR [Suspect]
     Dosage: 10 MG, QD
     Route: 048
     Dates: start: 20111219, end: 20120131
  3. HYDROCORTISONE [Concomitant]
     Indication: ADRENAL INSUFFICIENCY
     Dosage: 30 MG, QD
     Route: 048
  4. LEVOTHYROXINE [Concomitant]
     Indication: HYPOTHYROIDISM
     Dosage: 125 MG, QD
     Route: 048

REACTIONS (1)
  - Diabetes mellitus [Recovered/Resolved]
